FAERS Safety Report 20292198 (Version 3)
Quarter: 2022Q1

REPORT INFORMATION
  Report Type: Spontaneous
  Country: DE (occurrence: DE)
  Receive Date: 20220104
  Receipt Date: 20220328
  Transmission Date: 20220423
  Serious: Yes (Hospitalization, Other)
  Sender: FDA-Public Use
  Company Number: DE-PFIZER INC-202101839875

PATIENT
  Age: 80 Year
  Sex: Male
  Weight: 89 kg

DRUGS (9)
  1. LATANOPROST [Suspect]
     Active Substance: LATANOPROST
     Indication: Cataract
     Dosage: 2.5 ML, 1X/DAY
     Dates: start: 20210331, end: 20210927
  2. LATANOPROST [Suspect]
     Active Substance: LATANOPROST
     Indication: Intraocular pressure increased
  3. LATANOPROST [Suspect]
     Active Substance: LATANOPROST
     Indication: Glaucoma
  4. BRIMONIDINE [Suspect]
     Active Substance: BRIMONIDINE TARTRATE
     Indication: Cataract
     Dosage: 2 MG, 1X/DAY
     Dates: start: 20210331, end: 20210927
  5. BRIMONIDINE [Suspect]
     Active Substance: BRIMONIDINE TARTRATE
     Indication: Intraocular pressure increased
  6. COSOPT [Concomitant]
     Active Substance: DORZOLAMIDE HYDROCHLORIDE\TIMOLOL MALEATE
     Indication: Cataract
     Dosage: 20MG + 5 MG
     Dates: start: 20210331, end: 20210927
  7. COSOPT [Concomitant]
     Active Substance: DORZOLAMIDE HYDROCHLORIDE\TIMOLOL MALEATE
     Indication: Intraocular pressure increased
  8. ASPIRIN [Concomitant]
     Active Substance: ASPIRIN
     Indication: Cerebrovascular accident
     Dosage: 100 MG, 1X/DAY
     Dates: start: 2017
  9. RAMIRIL [Concomitant]
     Dosage: 5 MG, 1X/DAY
     Dates: start: 2016

REACTIONS (25)
  - Angina pectoris [Recovered/Resolved]
  - Arrhythmia [Recovered/Resolved]
  - Abdominal abscess [Recovered/Resolved]
  - Varicose vein ruptured [Recovered/Resolved]
  - Bleeding varicose vein [Recovered/Resolved]
  - Hypertension [Recovered/Resolved]
  - Listless [Recovered/Resolved]
  - Fatigue [Not Recovered/Not Resolved]
  - Memory impairment [Recovered/Resolved]
  - Throat irritation [Recovered/Resolved]
  - Vocal cord disorder [Recovered/Resolved]
  - Nasal dryness [Recovered/Resolved]
  - Palpitations [Recovered/Resolved]
  - Sleep disorder [Recovered/Resolved]
  - Abdominal distension [Recovered/Resolved]
  - Constipation [Not Recovered/Not Resolved]
  - Diarrhoea [Not Recovered/Not Resolved]
  - Gastrointestinal pain [Recovered/Resolved]
  - Aortic dilatation [Not Recovered/Not Resolved]
  - Scrotal swelling [Recovered/Resolved]
  - Abdominal pain [Not Recovered/Not Resolved]
  - Alopecia [Not Recovered/Not Resolved]
  - Somnolence [Recovered/Resolved]
  - Photopsia [Recovered/Resolved]
  - Abnormal dreams [Recovered/Resolved]

NARRATIVE: CASE EVENT DATE: 20210101
